FAERS Safety Report 14928334 (Version 1)
Quarter: 2018Q2

REPORT INFORMATION
  Report Type: Spontaneous
  Country: FR (occurrence: FR)
  Receive Date: 20180523
  Receipt Date: 20180523
  Transmission Date: 20180711
  Serious: Yes (Other)
  Sender: FDA-Public Use
  Company Number: FR-MERCK KGAA-2048300

PATIENT
  Age: 52 Year
  Sex: Female

DRUGS (1)
  1. NOVOTHYROX [Suspect]
     Active Substance: LEVOTHYROXINE SODIUM
     Indication: HYPOTHYROIDISM
     Dates: start: 20170424, end: 20171029

REACTIONS (22)
  - Arthralgia [Not Recovered/Not Resolved]
  - Restless legs syndrome [Recovered/Resolved]
  - Depressed mood [None]
  - Headache [Recovered/Resolved]
  - Depression [None]
  - Crying [None]
  - Weight increased [None]
  - Fatigue [Not Recovered/Not Resolved]
  - Gastrointestinal disorder [Recovered/Resolved]
  - Disturbance in attention [None]
  - Myalgia [None]
  - Insomnia [None]
  - Nightmare [None]
  - Loss of personal independence in daily activities [None]
  - Neck pain [None]
  - Malaise [None]
  - Diarrhoea [None]
  - Suicidal ideation [None]
  - Anger [None]
  - Paraesthesia [None]
  - Memory impairment [None]
  - Alopecia [None]

NARRATIVE: CASE EVENT DATE: 2017
